FAERS Safety Report 8170133 (Version 2)
Quarter: 2013Q1

REPORT INFORMATION
  Report Type: Spontaneous
  Country: US (occurrence: US)
  Receive Date: 20111005
  Receipt Date: 20130304
  Transmission Date: 20140127
  Serious: Yes (Other)
  Sender: FDA-Public Use
  Company Number: US-ASTRAZENECA-2011SE57950

PATIENT
  Age: 51 Year
  Sex: Female
  Weight: 160 kg

DRUGS (10)
  1. NEXIUM [Suspect]
     Indication: GASTROOESOPHAGEAL REFLUX DISEASE
     Dosage: DAILY
     Route: 048
     Dates: start: 200711, end: 2010
  2. PRILOSEC OTC [Suspect]
     Indication: GASTROOESOPHAGEAL REFLUX DISEASE
     Route: 048
     Dates: start: 2010, end: 201211
  3. OMEPRAZOLE [Suspect]
     Indication: GASTROOESOPHAGEAL REFLUX DISEASE
     Route: 048
     Dates: start: 201211
  4. CELLCEPT [Concomitant]
     Indication: RENAL DISORDER
     Route: 048
  5. TOPROL [Concomitant]
     Indication: RENAL HYPERTENSION
     Route: 048
  6. PREDNISONE [Concomitant]
     Indication: RENAL DISORDER
     Route: 048
  7. PROGRAPH [Concomitant]
     Indication: RENAL DISORDER
     Route: 048
     Dates: end: 201211
  8. CYCLOSPORINE [Concomitant]
     Indication: RENAL DISORDER
     Route: 048
     Dates: start: 201211
  9. RESTASIS [Concomitant]
     Indication: EYE DISORDER
     Dosage: 1 GTT EACH EYE TWO TIMES A DAY
     Route: 050
  10. TYLENOL [Concomitant]
     Indication: HEADACHE
     Route: 048

REACTIONS (6)
  - Brain neoplasm [Unknown]
  - Amnesia [Unknown]
  - Blood cholesterol increased [Unknown]
  - Abdominal pain upper [Not Recovered/Not Resolved]
  - Drug ineffective [Unknown]
  - Intentional drug misuse [Unknown]
